FAERS Safety Report 25526335 (Version 2)
Quarter: 2025Q3

REPORT INFORMATION
  Report Type: Spontaneous
  Country: US (occurrence: US)
  Receive Date: 20250707
  Receipt Date: 20250717
  Transmission Date: 20251021
  Serious: Yes (Life-Threatening, Hospitalization, Other)
  Sender: DR REDDYS
  Company Number: US-MLMSERVICE-20250623-PI552443-00175-1

PATIENT
  Age: 8 Week
  Sex: Male

DRUGS (5)
  1. HEPARIN [Suspect]
     Active Substance: HEPARIN SODIUM
     Indication: Product used for unknown indication
  2. TREPROSTINIL [Suspect]
     Active Substance: TREPROSTINIL
     Indication: Renovascular hypertension
  3. BIVALIRUDIN [Suspect]
     Active Substance: BIVALIRUDIN
     Indication: Thrombosis prophylaxis
  4. NITRIC OXIDE [Concomitant]
     Active Substance: NITRIC OXIDE
     Indication: Hyperleukocytosis
     Route: 055
  5. SILDENAFIL [Concomitant]
     Active Substance: SILDENAFIL
     Indication: Renovascular hypertension

REACTIONS (5)
  - Drug ineffective [Unknown]
  - Heparin-induced thrombocytopenia [Unknown]
  - Multiple organ dysfunction syndrome [Unknown]
  - Aortic thrombosis [Unknown]
  - Product use in unapproved indication [Unknown]
